FAERS Safety Report 13794714 (Version 2)
Quarter: 2017Q3

REPORT INFORMATION
  Report Type: Spontaneous
  Country: CL (occurrence: CL)
  Receive Date: 20170726
  Receipt Date: 20170817
  Transmission Date: 20171127
  Serious: Yes (Other)
  Sender: FDA-Public Use
  Company Number: CL-SUN PHARMACEUTICAL INDUSTRIES LTD-2017RR-146021

PATIENT
  Age: 30 Year
  Sex: Female

DRUGS (5)
  1. ORLISTAT. [Suspect]
     Active Substance: ORLISTAT
     Indication: HYPERTRIGLYCERIDAEMIA
     Dosage: 120 MG, UNK
     Route: 065
  2. METFORMINE [Suspect]
     Active Substance: METFORMIN HYDROCHLORIDE
     Indication: HYPERTRIGLYCERIDAEMIA
     Route: 065
  3. DOCOSAHEXAENOIC-ACID [Suspect]
     Active Substance: DOCONEXENT
     Indication: HYPERTRIGLYCERIDAEMIA
     Dosage: 300 MG, UNK
     Route: 065
  4. EICOSAPENTAENOIC-ACID [Suspect]
     Active Substance: ICOSAPENT
     Indication: HYPERTRIGLYCERIDAEMIA
     Dosage: 300 MG, UNK
     Route: 065
  5. FENOFIBRATE. [Suspect]
     Active Substance: FENOFIBRATE
     Indication: HYPERTRIGLYCERIDAEMIA
     Dosage: 200 MG, UNK
     Route: 065

REACTIONS (2)
  - Drug ineffective [Recovering/Resolving]
  - Exposure during pregnancy [Recovering/Resolving]
